FAERS Safety Report 4676892-8 (Version None)
Quarter: 2005Q2

REPORT INFORMATION
  Report Type: 
  Country: None (occurrence: None)
  Receive Date: 20050527
  Receipt Date: 20050331
  Transmission Date: 20051028
  Serious: Yes (Death)
  Sender: FDA-Public Use
  Company Number: 2005000650

PATIENT
  Age: 74 Year
  Sex: Male
  Weight: 79.3795 kg

DRUGS (6)
  1. TARCEVA [Suspect]
     Indication: NON-SMALL CELL LUNG CANCER
     Dosage: SEE IMAGE
     Route: 048
     Dates: start: 20050218, end: 20050221
  2. TARCEVA [Suspect]
     Indication: NON-SMALL CELL LUNG CANCER
     Dosage: SEE IMAGE
     Route: 048
     Dates: start: 20050305, end: 20050328
  3. TARCEVA [Suspect]
     Indication: NON-SMALL CELL LUNG CANCER
     Dosage: SEE IMAGE
     Route: 048
     Dates: start: 20050329, end: 20050404
  4. TOPICAL CLINDAMYCIN (CLINDAMYCIN) [Concomitant]
  5. MULTIVITAMIN [Concomitant]
  6. ZOMETA [Concomitant]

REACTIONS (4)
  - DRY SKIN [None]
  - PULMONARY EMBOLISM [None]
  - RASH [None]
  - WEIGHT DECREASED [None]
